FAERS Safety Report 13788650 (Version 1)
Quarter: 2017Q3

REPORT INFORMATION
  Report Type: Spontaneous
  Country: US (occurrence: US)
  Receive Date: 20170725
  Receipt Date: 20170725
  Transmission Date: 20171127
  Serious: No
  Sender: FDA-Public Use
  Company Number: US-UNITED THERAPEUTICS-UNT-2016-018064

PATIENT
  Age: 67 Year
  Sex: Female
  Weight: 85.71 kg

DRUGS (5)
  1. GABAPENTIN. [Suspect]
     Active Substance: GABAPENTIN
     Indication: PRODUCT USED FOR UNKNOWN INDICATION
     Route: 065
  2. REMODULIN [Suspect]
     Active Substance: TREPROSTINIL
     Indication: PULMONARY ARTERIAL HYPERTENSION
     Dosage: 0.0435 ?G/KG, CONTINUING
     Route: 058
     Dates: start: 20141211
  3. PLURONIC LECITHIN ORGANOGEL [Suspect]
     Active Substance: LECITHIN\POLOXAMER 407
     Indication: INFUSION SITE PAIN
     Route: 065
  4. REMODULIN [Suspect]
     Active Substance: TREPROSTINIL
     Dosage: UNK
     Route: 058
  5. LETAIRIS [Concomitant]
     Active Substance: AMBRISENTAN
     Indication: PRODUCT USED FOR UNKNOWN INDICATION

REACTIONS (9)
  - Somnolence [Unknown]
  - Dermatitis contact [Unknown]
  - Infusion site oedema [Unknown]
  - Infusion site irritation [Unknown]
  - Infusion site inflammation [Unknown]
  - Impaired healing [Unknown]
  - Infusion site erythema [Unknown]
  - Infusion site scar [Unknown]
  - Infusion site pain [Unknown]

NARRATIVE: CASE EVENT DATE: 201611
